FAERS Safety Report 10871666 (Version 1)
Quarter: 2015Q1

REPORT INFORMATION
  Report Type: Spontaneous
  Country: GB (occurrence: GB)
  Receive Date: 20150226
  Receipt Date: 20150226
  Transmission Date: 20150721
  Serious: Yes (Other)
  Sender: FDA-Public Use
  Company Number: GB-009507513-1502GBR010919

PATIENT
  Age: 58 Year
  Sex: Female
  Weight: 65.5 kg

DRUGS (15)
  1. BUDESONIDE. [Concomitant]
     Active Substance: BUDESONIDE
     Dates: start: 20141215, end: 20150112
  2. NUTRITIONAL SUPPLEMENTS [Concomitant]
     Active Substance: DIETARY SUPPLEMENT
     Dates: start: 20150122, end: 20150129
  3. SALMETEROL [Concomitant]
     Active Substance: SALMETEROL
     Dates: start: 20141215, end: 20150112
  4. PIROXICAM. [Concomitant]
     Active Substance: PIROXICAM
     Dates: start: 20141202, end: 20141230
  5. ZOMORPH [Concomitant]
     Active Substance: MORPHINE SULFATE
     Dates: start: 20141110, end: 20141210
  6. ERTAPENEM SODIUM [Suspect]
     Active Substance: ERTAPENEM SODIUM
     Dates: start: 20150206
  7. ERTAPENEM SODIUM [Suspect]
     Active Substance: ERTAPENEM SODIUM
     Dosage: UNK
     Dates: start: 20141114, end: 20141124
  8. FENTANYL. [Concomitant]
     Active Substance: FENTANYL
     Dates: start: 20141121, end: 20141218
  9. MORPHINE SULFATE. [Concomitant]
     Active Substance: MORPHINE SULFATE
     Dates: start: 20141031, end: 20141203
  10. FLUOCINOLONE ACETONIDE. [Concomitant]
     Active Substance: FLUOCINOLONE ACETONIDE
     Dates: start: 20141231, end: 20150130
  11. LOPERAMIDE HYDROCHLORIDE. [Concomitant]
     Active Substance: LOPERAMIDE HYDROCHLORIDE
     Dates: start: 20150202
  12. ACETAMINOPHEN. [Concomitant]
     Active Substance: ACETAMINOPHEN
     Dates: start: 20141215
  13. PROCHLORPERAZINE. [Concomitant]
     Active Substance: PROCHLORPERAZINE
     Dates: start: 20150203, end: 20150210
  14. ONDANSETRON HYDROCHLORIDE. [Concomitant]
     Active Substance: ONDANSETRON HYDROCHLORIDE
     Dates: start: 20150113, end: 20150212
  15. GABAPENTIN. [Concomitant]
     Active Substance: GABAPENTIN
     Dates: start: 20141111, end: 20150112

REACTIONS (1)
  - Liver function test abnormal [Unknown]

NARRATIVE: CASE EVENT DATE: 20150212
